FAERS Safety Report 19127122 (Version 1)
Quarter: 2021Q2

REPORT INFORMATION
  Report Type: Spontaneous
  Country: US (occurrence: US)
  Receive Date: 20210412
  Receipt Date: 20210412
  Transmission Date: 20210717
  Serious: Yes (Life-Threatening, Hospitalization, Disabling, Other)
  Sender: FDA-Public Use
  Company Number: None

PATIENT
  Sex: Male

DRUGS (1)
  1. NITROUS OXIDE. [Suspect]
     Active Substance: NITROUS OXIDE
     Dosage: OTHER FREQUENCY: KIDS DOING 50+/DAY
     Route: 055

REACTIONS (3)
  - Seizure [None]
  - Substance abuse [None]
  - Withdrawal syndrome [None]

NARRATIVE: CASE EVENT DATE: 20210401
